FAERS Safety Report 11588926 (Version 1)
Quarter: 2015Q4

REPORT INFORMATION
  Report Type: Spontaneous
  Country: JP (occurrence: JP)
  Receive Date: 20151002
  Receipt Date: 20151002
  Transmission Date: 20160304
  Serious: Yes (Other)
  Sender: FDA-Public Use
  Company Number: JP-ASPEN PHARMA TRADING LIMITED US-GS-2015-008719

PATIENT

DRUGS (3)
  1. BUSULFAN [Suspect]
     Active Substance: BUSULFAN
     Indication: JUVENILE CHRONIC MYELOMONOCYTIC LEUKAEMIA
     Dosage: UNK (ON DAYS -11, -10, -9, AND -8)
     Route: 065
  2. FLUDARABINE [Suspect]
     Active Substance: FLUDARABINE PHOSPHATE
     Indication: JUVENILE CHRONIC MYELOMONOCYTIC LEUKAEMIA
     Dosage: 30 MG/M2, QD, FOR 4 DAYS (TOTAL DOSE:120 MG/M2) ON DAYS -7, -6, -5 AND -4
     Route: 042
  3. MELPHALAN [Suspect]
     Active Substance: MELPHALAN
     Indication: JUVENILE CHRONIC MYELOMONOCYTIC LEUKAEMIA
     Dosage: 90 MG/M2, QD, FOR 2 DAYS (TOTAL DOSE: 180 MG/M2) ON DAYS -3 AND -2
     Route: 042

REACTIONS (1)
  - Hepatotoxicity [Unknown]
